FAERS Safety Report 5273305-2 (Version None)
Quarter: 2007Q1

REPORT INFORMATION
  Report Type: 
  Country: None (occurrence: None)
  Receive Date: 20070319
  Receipt Date: 20070306
  Transmission Date: 20070707
  Serious: Yes (Life-Threatening)
  Sender: FDA-Public Use
  Company Number: GXKR2007GB02294

PATIENT
  Age: 71 Year
  Sex: Male

DRUGS (11)
  1. WARFARIN SODIUM [Suspect]
     Dosage: SEE IMAGE
     Route: 048
     Dates: end: 20070207
  2. GUAIFENESIN [Suspect]
     Dosage: UNK, UNK, ORAL
     Route: 048
     Dates: start: 20070131, end: 20070207
  3. AMIODARONE HCL [Concomitant]
  4. DIGOXIN [Concomitant]
  5. DOMPERIDONE (DOMPERIDONE) [Concomitant]
  6. LOSARTAN POTASSIUM [Concomitant]
  7. MEBEVERINE (MEBEVERINE) [Concomitant]
  8. OMEPRAZOLE [Concomitant]
  9. PAROXETINE [Concomitant]
  10. PEPPERMINT OIL (MENTHA X PIPERITA OIL) [Concomitant]
  11. SIMVASTATIN [Concomitant]

REACTIONS (2)
  - DRUG INTERACTION [None]
  - INTERNATIONAL NORMALISED RATIO INCREASED [None]
